FAERS Safety Report 19137492 (Version 1)
Quarter: 2021Q2

REPORT INFORMATION
  Report Type: Spontaneous
  Country: IN (occurrence: IN)
  Receive Date: 20210415
  Receipt Date: 20210415
  Transmission Date: 20210717
  Serious: Yes (Hospitalization)
  Sender: FDA-Public Use
  Company Number: IN-SCIEGEN-2021SCILIT00358

PATIENT
  Age: 58 Year
  Sex: Male

DRUGS (3)
  1. ERGOCALCIFEROL. [Interacting]
     Active Substance: ERGOCALCIFEROL
     Indication: SPINAL PAIN
     Route: 065
  2. CORTICOSTEROID NOS [Interacting]
     Active Substance: CORTICOSTEROID NOS
     Indication: PSORIASIS
     Route: 065
  3. NAPROXEN. [Suspect]
     Active Substance: NAPROXEN
     Indication: SPINAL PAIN
     Dosage: FOR MORE THAN 9 MONTHS
     Route: 065

REACTIONS (1)
  - Psoriasis [Recovered/Resolved]
